FAERS Safety Report 19377678 (Version 1)
Quarter: 2021Q2

REPORT INFORMATION
  Report Type: Spontaneous
  Country: GB (occurrence: GB)
  Receive Date: 20210605
  Receipt Date: 20210605
  Transmission Date: 20210717
  Serious: Yes (Disabling)
  Sender: FDA-Public Use
  Company Number: NVSC2021GB122037

PATIENT
  Age: 78 Year
  Sex: Male

DRUGS (2)
  1. BRINZOLAMIDE [Suspect]
     Active Substance: BRINZOLAMIDE
     Indication: GLAUCOMA
     Dosage: 1 DRP, BID
     Route: 047
     Dates: start: 20210412, end: 20210528
  2. TIMOLOL. [Concomitant]
     Active Substance: TIMOLOL
     Indication: ILL-DEFINED DISORDER
     Route: 065

REACTIONS (2)
  - Vomiting [Unknown]
  - Myalgia [Unknown]

NARRATIVE: CASE EVENT DATE: 20210413
